FAERS Safety Report 17304785 (Version 1)
Quarter: 2020Q1

REPORT INFORMATION
  Report Type: Report from Study
  Country: None (occurrence: DE)
  Receive Date: 20200122
  Receipt Date: 20200122
  Transmission Date: 20200409
  Serious: Yes (Hospitalization)
  Sender: FDA-Public Use
  Company Number: DE-ABBVIE-20K-062-3240745-00

PATIENT
  Sex: Female

DRUGS (1)
  1. DUODOPA [Suspect]
     Active Substance: CARBIDOPA\LEVODOPA
     Indication: PARKINSON^S DISEASE
     Dosage: MD 7ML; CRD 2.3ML/H; ED 1ML
     Route: 050
     Dates: start: 20180309

REACTIONS (2)
  - Hypermobility syndrome [Not Recovered/Not Resolved]
  - Restlessness [Not Recovered/Not Resolved]
